FAERS Safety Report 10080480 (Version 4)
Quarter: 2014Q2

REPORT INFORMATION
  Report Type: Report from Study
  Country: JP (occurrence: JP)
  Receive Date: 20140416
  Receipt Date: 20140606
  Transmission Date: 20141212
  Serious: Yes (Life-Threatening, Other)
  Sender: FDA-Public Use
  Company Number: JP-ROCHE-1360049

PATIENT
  Age: 46 Year
  Sex: Female
  Weight: 41.9 kg

DRUGS (8)
  1. TRASTUZUMAB EMTANSINE [Suspect]
     Indication: BREAST CANCER METASTATIC
     Route: 042
     Dates: start: 20140227
  2. REBAMIPIDE [Concomitant]
     Indication: GASTRITIS PROPHYLAXIS
     Dosage: THE BEGINNING OF DOSAGE DAY: THAN BEFORE
     Route: 048
  3. GASMOTIN [Concomitant]
     Indication: DYSPEPSIA
     Dosage: THE BEGINNING OF DOSAGE DAY: THAN BEFORE
     Route: 048
  4. METHYCOOL [Concomitant]
     Indication: NEUROPATHY PERIPHERAL
     Dosage: THE BEGINNING OF DOSAGE DAY: THAN BEFORE
     Route: 048
  5. SENNOSIDE [Concomitant]
     Indication: CONSTIPATION
     Dosage: THE BEGINNING OF DOSAGE DAY: THAN BEFORE
     Route: 048
  6. OXYCONTIN [Concomitant]
     Indication: CANCER PAIN
     Dosage: THE BEGINNING OF DOSAGE DAY: THAN BEFORE
     Route: 048
  7. ZOLPIDEM TARTRATE [Concomitant]
     Indication: INSOMNIA
     Route: 048
  8. URSODEOXYCHOLIC ACID [Concomitant]
     Indication: PROPHYLAXIS
     Dosage: THE BEGINNING OF DOSAGE DAY: THAN BEFORE BRAND NAME: URDENACIN
     Route: 048

REACTIONS (3)
  - Hepatic function abnormal [Recovering/Resolving]
  - Platelet count decreased [Recovered/Resolved]
  - Anaemia [Recovered/Resolved]
